FAERS Safety Report 8836617 (Version 1)
Quarter: 2012Q4

REPORT INFORMATION
  Report Type: Spontaneous
  Country: TR (occurrence: None)
  Receive Date: 20121009
  Receipt Date: 20121009
  Transmission Date: 20130627
  Serious: Yes (Hospitalization)
  Sender: FDA-Public Use
  Company Number: TR-MACLEODS PHARMA-000008

PATIENT

DRUGS (1)
  1. PANTOPRAZOLE (PANTOPRAZOLE) [Suspect]
     Indication: GASTROESOPHAGEAL REFLUX
     Route: 048

REACTIONS (8)
  - Kounis syndrome [None]
  - Pruritus generalised [None]
  - Malaise [None]
  - Dyspnoea [None]
  - Rash generalised [None]
  - Hyperhidrosis [None]
  - Pallor [None]
  - Drug hypersensitivity [None]
